FAERS Safety Report 12218103 (Version 1)
Quarter: 2016Q1

REPORT INFORMATION
  Report Type: Spontaneous
  Country: FR (occurrence: FR)
  Receive Date: 20160329
  Receipt Date: 20160329
  Transmission Date: 20160526
  Serious: Yes (Other)
  Sender: FDA-Public Use
  Company Number: PHHY2016FR040389

PATIENT
  Age: 69 Year
  Sex: Female

DRUGS (7)
  1. CARBOPLATIN. [Suspect]
     Active Substance: CARBOPLATIN
     Indication: OVARIAN CANCER
     Dosage: 2 COURSES
     Route: 042
     Dates: start: 201007, end: 201008
  2. CAELYX [Suspect]
     Active Substance: DOXORUBICIN HYDROCHLORIDE
     Indication: OVARIAN CANCER
     Dosage: 2 MG/ML, UNK (3 COURSES)
     Route: 042
     Dates: start: 201009, end: 201012
  3. ENDOXAN [Suspect]
     Active Substance: CYCLOPHOSPHAMIDE
     Indication: OVARIAN CANCER
     Dosage: UNK (3 COURSES)
     Route: 065
     Dates: start: 201310, end: 201402
  4. ALKERAN [Suspect]
     Active Substance: MELPHALAN
     Indication: OVARIAN CANCER
     Dosage: UNK (2 COURSES)
     Route: 042
     Dates: start: 201408, end: 201409
  5. HYCAMTIN [Suspect]
     Active Substance: TOPOTECAN HYDROCHLORIDE
     Indication: OVARIAN CANCER
     Dosage: 11 COURSES
     Route: 042
     Dates: start: 20110211, end: 201105
  6. TOXOL [Suspect]
     Active Substance: AMBROXOL\AMOXICILLIN
     Indication: OVARIAN CANCER
     Dosage: 2 COURSES
     Route: 042
     Dates: start: 201007, end: 201008
  7. COUMADINE [Concomitant]
     Active Substance: WARFARIN SODIUM
     Indication: PULMONARY EMBOLISM
     Dosage: UNK
     Route: 048
     Dates: start: 2010

REACTIONS (2)
  - Squamous cell carcinoma of skin [Not Recovered/Not Resolved]
  - Second primary malignancy [Not Recovered/Not Resolved]

NARRATIVE: CASE EVENT DATE: 201510
